FAERS Safety Report 23193307 (Version 2)
Quarter: 2023Q4

REPORT INFORMATION
  Report Type: Report from Study
  Country: CO (occurrence: CO)
  Receive Date: 20231116
  Receipt Date: 20231120
  Transmission Date: 20240109
  Serious: Yes (Hospitalization)
  Sender: FDA-Public Use
  Company Number: CO-BAYER-2023A142105

PATIENT
  Age: 58 Year
  Sex: Female

DRUGS (2)
  1. ADEMPAS [Suspect]
     Active Substance: RIOCIGUAT
     Indication: Pulmonary hypertension
     Dosage: 2.5 MG, Q8HR
     Dates: start: 20160401
  2. ADEMPAS [Suspect]
     Active Substance: RIOCIGUAT
     Indication: Pulmonary hypertension

REACTIONS (7)
  - Dyspnoea [Not Recovered/Not Resolved]
  - Pain [None]
  - Biopsy rectum [None]
  - Colonoscopy [None]
  - Constipation [None]
  - Inappropriate schedule of product administration [None]
  - Product availability issue [None]

NARRATIVE: CASE EVENT DATE: 20231001
